FAERS Safety Report 22108531 (Version 6)
Quarter: 2023Q2

REPORT INFORMATION
  Report Type: Report from Study
  Country: FR (occurrence: FR)
  Receive Date: 20230317
  Receipt Date: 20230614
  Transmission Date: 20230722
  Serious: Yes (Death, Hospitalization, Other)
  Sender: FDA-Public Use
  Company Number: FR-TAKEDA-2023TUS025908

PATIENT
  Age: 70 Year
  Sex: Male
  Weight: 68 kg

DRUGS (4)
  1. MARIBAVIR [Suspect]
     Active Substance: MARIBAVIR
     Indication: Cytomegalovirus infection
     Dosage: 200 MILLIGRAM, BID
     Route: 048
     Dates: start: 20230217
  2. CYTOTEC [Concomitant]
     Active Substance: MISOPROSTOL
     Indication: Cytomegalovirus infection reactivation
     Dosage: UNK
     Route: 065
     Dates: start: 20230226, end: 20230306
  3. TACROLIMUS [Concomitant]
     Active Substance: TACROLIMUS
     Indication: Immunosuppressant drug therapy
     Route: 065
  4. CELLCEPT [Concomitant]
     Active Substance: MYCOPHENOLATE MOFETIL
     Indication: Immunosuppressant drug therapy
     Route: 065

REACTIONS (6)
  - Pneumonia cytomegaloviral [Fatal]
  - COVID-19 pneumonia [Fatal]
  - Chronic respiratory failure [Fatal]
  - Acute respiratory distress syndrome [Unknown]
  - Hypoxia [Not Recovered/Not Resolved]
  - Drug effect less than expected [Unknown]

NARRATIVE: CASE EVENT DATE: 20230221
